FAERS Safety Report 12082710 (Version 2)
Quarter: 2016Q1

REPORT INFORMATION
  Report Type: Spontaneous
  Country: US (occurrence: US)
  Receive Date: 20160217
  Receipt Date: 20160329
  Transmission Date: 20160526
  Serious: Yes (Death, Other)
  Sender: FDA-Public Use
  Company Number: US-BRISTOL-MYERS SQUIBB COMPANY-BMS-2016-008670

PATIENT
  Sex: Male

DRUGS (3)
  1. YERVOY [Suspect]
     Active Substance: IPILIMUMAB
     Dosage: 300 MG, Q3WK
     Route: 042
     Dates: start: 20141110, end: 20141110
  2. YERVOY [Suspect]
     Active Substance: IPILIMUMAB
     Indication: PRODUCT USED FOR UNKNOWN INDICATION
     Dosage: 300 MG, Q3WK
     Route: 042
     Dates: start: 20141020, end: 20141020
  3. YERVOY [Suspect]
     Active Substance: IPILIMUMAB
     Dosage: 300 MG, Q3WK
     Route: 042
     Dates: start: 20141201, end: 20141201

REACTIONS (1)
  - Malignant neoplasm progression [Fatal]
